FAERS Safety Report 10213620 (Version 1)
Quarter: 2014Q2

REPORT INFORMATION
  Report Type: Spontaneous
  Country: SA (occurrence: None)
  Receive Date: 20140530
  Receipt Date: 20140530
  Transmission Date: 20141212
  Serious: Yes (Death)
  Sender: FDA-Public Use
  Company Number: 2014P1004605

PATIENT
  Age: 32 Year
  Sex: Female

DRUGS (2)
  1. HYDROCORTISONE [Suspect]
     Indication: VARICELLA ZOSTER PNEUMONIA
  2. ACYCLOVIR [Concomitant]

REACTIONS (5)
  - Varicella zoster pneumonia [None]
  - Infectious pleural effusion [None]
  - Multi-organ failure [None]
  - Condition aggravated [None]
  - Immunosuppression [None]
